FAERS Safety Report 5236757-X (Version None)
Quarter: 2007Q1

REPORT INFORMATION
  Report Type: 
  Country: None (occurrence: None)
  Receive Date: 20061208
  Receipt Date: 20050520
  Transmission Date: 20070707
  Serious: Yes (Other)
  Sender: FDA-Public Use
  Company Number: 2005UW07830

PATIENT
  Age: 72 Year
  Sex: Female
  Weight: 75.749 kg

DRUGS (7)
  1. CRESTOR [Suspect]
     Indication: BLOOD CHOLESTEROL INCREASED
     Dosage: 20 MG PO
     Route: 048
     Dates: start: 20040101
  2. SYNTHROID [Concomitant]
  3. ZETIA [Concomitant]
  4. ALTACE [Concomitant]
  5. TOPROL-XL [Concomitant]
  6. LEXAPRO [Concomitant]
  7. ASPIRIN [Concomitant]

REACTIONS (2)
  - BACK PAIN [None]
  - BURNING SENSATION [None]
